FAERS Safety Report 7659373-9 (Version None)
Quarter: 2011Q3

REPORT INFORMATION
  Report Type: 
  Country: None (occurrence: None)
  Receive Date: 20110805
  Receipt Date: 20110725
  Transmission Date: 20111222
  Serious: Yes (Hospitalization, Other)
  Sender: FDA-Public Use
  Company Number: JP-ROCHE-780453

PATIENT
  Sex: Male
  Weight: 78.5 kg

DRUGS (22)
  1. OXALIPLATIN [Suspect]
     Indication: RECTAL CANCER METASTATIC
     Route: 042
     Dates: start: 20100511, end: 20100511
  2. OXALIPLATIN [Suspect]
     Route: 042
     Dates: start: 20100913, end: 20100913
  3. UREPEARL [Concomitant]
     Dosage: FORM: EXTERNAL PREPARATION
     Route: 003
     Dates: start: 20100512, end: 20100512
  4. CIBENOL [Concomitant]
     Dosage: CIBENOL(CIBENZOLINE SUCCINATE), DOSAGE IS UNCERTAIN
     Route: 048
     Dates: end: 20101026
  5. KYTRIL [Concomitant]
     Dosage: DRUG: KYTRIL INJECTION(GRANISETRON), NOTE: ONLY AT TREATMENT
     Route: 042
     Dates: start: 20100511, end: 20100823
  6. CAPECITABINE [Suspect]
     Route: 048
     Dates: start: 20100621, end: 20100704
  7. OXALIPLATIN [Suspect]
     Route: 042
     Dates: start: 20100621, end: 20100621
  8. DECADRON [Concomitant]
     Dosage: NOTE: ONLY AT TREATMENT, DRUG:DECADRON(DEXAMETHASONE SODIUM PHOSPHATE)
     Route: 042
     Dates: start: 20100511, end: 20100913
  9. ALOXI [Concomitant]
     Dosage: NOTE: ONLY WHEN UNCERTAIN DOSAGE IS TREATED
     Route: 042
     Dates: start: 20100913, end: 20100913
  10. CAPECITABINE [Suspect]
     Route: 048
     Dates: start: 20100712, end: 20100725
  11. OXALIPLATIN [Suspect]
     Route: 042
     Dates: start: 20100531, end: 20100531
  12. CARVEDILOL [Concomitant]
     Dosage: DOSAGE IS UNCERTAIN
     Route: 048
     Dates: end: 20101026
  13. CAPECITABINE [Suspect]
     Indication: RECTAL CANCER METASTATIC
     Dosage: DRUG: XELODA 300
     Route: 048
     Dates: start: 20100511, end: 20100524
  14. CAPECITABINE [Suspect]
     Route: 048
     Dates: start: 20100823, end: 20100905
  15. LOPERAMIDE HCL [Concomitant]
     Dosage: NOTE: PROPERLY
     Route: 048
     Dates: start: 20100531, end: 20100712
  16. WARFARIN SODIUM [Concomitant]
     Dosage: DOSAGE IS UNCERTAIN, DRUG: WARFARIN(WARFARIN POTASSIUM)
     Route: 048
     Dates: end: 20101026
  17. CAPECITABINE [Suspect]
     Route: 048
     Dates: start: 20100913, end: 20100920
  18. CAPECITABINE [Suspect]
     Route: 048
     Dates: start: 20100531, end: 20100614
  19. OXALIPLATIN [Suspect]
     Route: 042
     Dates: start: 20100712, end: 20100712
  20. OXALIPLATIN [Suspect]
     Route: 042
     Dates: start: 20100823, end: 20100823
  21. PYDOXAL [Concomitant]
     Dosage: PYDOXAL TAB
     Route: 048
     Dates: start: 20100511, end: 20100920
  22. VERAPAMIL HCL [Concomitant]
     Dosage: DOSAGE IS UNCERTAIN
     Route: 048
     Dates: end: 20101026

REACTIONS (11)
  - NEUROPATHY PERIPHERAL [None]
  - NEPHROTIC SYNDROME [None]
  - BLOOD BILIRUBIN INCREASED [None]
  - PURPURA [None]
  - URTICARIA [None]
  - PLATELET COUNT DECREASED [None]
  - PALMAR-PLANTAR ERYTHRODYSAESTHESIA SYNDROME [None]
  - DIARRHOEA [None]
  - ANAEMIA [None]
  - RENAL FAILURE CHRONIC [None]
  - ASCITES [None]
